FAERS Safety Report 5653384-0 (Version None)
Quarter: 2008Q1

REPORT INFORMATION
  Report Type: 
  Country: None (occurrence: None)
  Receive Date: 20080131
  Receipt Date: 20071107
  Transmission Date: 20080703
  Serious: No
  Sender: FDA-Public Use
  Company Number: US200711002231

PATIENT
  Sex: Male

DRUGS (2)
  1. BYETTA [Suspect]
     Indication: DRUG USE FOR UNKNOWN INDICATION
     Dosage: 10 UG, UNKNOWN, SUBCUTANEOUS
     Route: 058
  2. EXENATIDE 10 MCG PEN, [Concomitant]

REACTIONS (1)
  - WEIGHT INCREASED [None]
